FAERS Safety Report 14169563 (Version 1)
Quarter: 2017Q4

REPORT INFORMATION
  Report Type: Spontaneous
  Country: US (occurrence: US)
  Receive Date: 20171107
  Receipt Date: 20171107
  Transmission Date: 20180321
  Serious: Yes (Life-Threatening)
  Sender: FDA-Public Use
  Company Number: None

PATIENT
  Sex: Female
  Weight: 85.5 kg

DRUGS (1)
  1. TYLENOL EXTRA STRENGTH [Suspect]
     Active Substance: ACETAMINOPHEN
     Indication: HEADACHE
     Dosage: ?          QUANTITY:1 TABLET(S);OTHER FREQUENCY:ONE ONCE;?
     Route: 048
     Dates: start: 20171106, end: 20171106

REACTIONS (7)
  - Rash generalised [None]
  - Blood pressure decreased [None]
  - Swollen tongue [None]
  - Pruritus [None]
  - Peripheral swelling [None]
  - Lip swelling [None]
  - Dyspnoea [None]

NARRATIVE: CASE EVENT DATE: 20171106
